FAERS Safety Report 9548875 (Version 3)
Quarter: 2013Q4

REPORT INFORMATION
  Report Type: Spontaneous
  Country: US (occurrence: US)
  Receive Date: 20130924
  Receipt Date: 20131120
  Transmission Date: 20140711
  Serious: Yes (Death)
  Sender: FDA-Public Use
  Company Number: US-PFIZER INC-2013272016

PATIENT
  Sex: Male

DRUGS (1)
  1. NITROSTAT [Suspect]
     Dosage: 0.4 MG, UNK
     Dates: start: 20130606

REACTIONS (1)
  - Death [Fatal]
